FAERS Safety Report 7078232-6 (Version None)
Quarter: 2010Q4

REPORT INFORMATION
  Report Type: 
  Country: None (occurrence: None)
  Receive Date: 20101101
  Receipt Date: 20101101
  Transmission Date: 20110411
  Serious: Yes (Hospitalization, Other)
  Sender: FDA-Public Use
  Company Number: None

PATIENT
  Sex: Female
  Weight: 87.0906 kg

DRUGS (1)
  1. PHENTERMINE [Suspect]
     Indication: OVERWEIGHT
     Dosage: 37.5 MG ONCE/DAY MOUTH
     Route: 048
     Dates: start: 20101005, end: 20101013

REACTIONS (7)
  - CONSTIPATION [None]
  - DYSPEPSIA [None]
  - FLATULENCE [None]
  - GASTROINTESTINAL DISORDER [None]
  - INFREQUENT BOWEL MOVEMENTS [None]
  - MUSCLE STRAIN [None]
  - URINARY RETENTION [None]
